FAERS Safety Report 17671265 (Version 2)
Quarter: 2020Q2

REPORT INFORMATION
  Report Type: Spontaneous
  Country: CN (occurrence: CN)
  Receive Date: 20200415
  Receipt Date: 20200420
  Transmission Date: 20200713
  Serious: Yes (Other)
  Sender: FDA-Public Use
  Company Number: CN-ROCHE-2582325

PATIENT
  Age: 66 Year
  Sex: Male

DRUGS (17)
  1. OXALIPLATIN. [Suspect]
     Active Substance: OXALIPLATIN
     Dosage: CAPEOX REGIMEN  5 CYCLES, DAY1, EVERY 21 DAYS AS ONE CYCLE
     Route: 041
     Dates: start: 20190418
  2. OXALIPLATIN. [Suspect]
     Active Substance: OXALIPLATIN
     Dosage: CAPEOX REGIMEN  5 CYCLES, DAY1, EVERY 21 DAYS AS ONE CYCLE
     Route: 041
     Dates: start: 20190510
  3. AVASTIN [Suspect]
     Active Substance: BEVACIZUMAB
     Dosage: DAY 1
     Route: 065
     Dates: start: 20190821
  4. IRINOTECAN [Suspect]
     Active Substance: IRINOTECAN
     Dosage: DAY 2
     Route: 065
     Dates: start: 20190821
  5. CAPECITABINE. [Suspect]
     Active Substance: CAPECITABINE
     Indication: METASTASES TO LIVER
     Dosage: CAPEOX REGIMEN, DAY1-14, EVERY 21 DAYS AS ONE CYCLE
     Route: 048
     Dates: start: 20190328
  6. OXALIPLATIN. [Suspect]
     Active Substance: OXALIPLATIN
     Indication: RECTAL CANCER
     Dosage: CAPEOX REGIMEN  5 CYCLES, DAY1, EVERY 21 DAYS AS ONE CYCLE
     Route: 041
     Dates: start: 20181124
  7. CAPECITABINE. [Suspect]
     Active Substance: CAPECITABINE
     Indication: RECTAL CANCER
     Dosage: CAPEOX REGIMEN  5 CYCLES, DAY1-14, EVERY 21 DAYS AS ONE CYCLE
     Route: 048
     Dates: start: 20181124
  8. CAPECITABINE. [Suspect]
     Active Substance: CAPECITABINE
     Dosage: CAPEOX REGIMEN, DAY1-14, EVERY 21 DAYS AS ONE CYCLE
     Route: 048
     Dates: start: 20190418
  9. IRINOTECAN [Suspect]
     Active Substance: IRINOTECAN
     Indication: RECTAL CANCER
     Dosage: DAY 2
     Route: 065
     Dates: start: 20190710
  10. IRINOTECAN [Suspect]
     Active Substance: IRINOTECAN
     Dosage: DAY 2
     Route: 065
     Dates: start: 20190807
  11. AVASTIN [Suspect]
     Active Substance: BEVACIZUMAB
     Indication: RECTAL CANCER
     Dosage: DAY 1
     Route: 065
     Dates: start: 20190710
  12. AVASTIN [Suspect]
     Active Substance: BEVACIZUMAB
     Dosage: DAY 1
     Route: 065
     Dates: start: 20190807
  13. AVASTIN [Suspect]
     Active Substance: BEVACIZUMAB
     Route: 065
     Dates: start: 20190101
  14. OXALIPLATIN. [Suspect]
     Active Substance: OXALIPLATIN
     Indication: METASTASES TO LIVER
     Dosage: CAPEOX REGIMEN  5 CYCLES, DAY1, EVERY 21 DAYS AS ONE CYCLE
     Route: 041
     Dates: start: 20190328
  15. IRINOTECAN [Suspect]
     Active Substance: IRINOTECAN
     Indication: METASTASES TO LIVER
     Dosage: DAY 2
     Route: 065
     Dates: start: 20190724
  16. AVASTIN [Suspect]
     Active Substance: BEVACIZUMAB
     Indication: METASTASES TO LIVER
     Dosage: DAY 1
     Route: 065
     Dates: start: 20190724
  17. CAPECITABINE. [Suspect]
     Active Substance: CAPECITABINE
     Dosage: CAPEOX REGIMEN, DAY1-14, EVERY 21 DAYS AS ONE CYCLE
     Route: 048
     Dates: start: 20190510

REACTIONS (1)
  - Bone marrow failure [Unknown]

NARRATIVE: CASE EVENT DATE: 2019
